FAERS Safety Report 4530970-2 (Version None)
Quarter: 2004Q4

REPORT INFORMATION
  Report Type: 
  Country: None (occurrence: None)
  Receive Date: 20041202
  Receipt Date: 20041004
  Transmission Date: 20050328
  Serious: No
  Sender: FDA-Public Use
  Company Number: 200420771BWH

PATIENT
  Age: 43 Year
  Sex: Male
  Weight: 111.1313 kg

DRUGS (8)
  1. LEVITRA [Suspect]
     Indication: ERECTILE DYSFUNCTION
     Dosage: ONCE, ORAL
     Route: 048
     Dates: start: 20041001
  2. M.V.I. [Concomitant]
  3. GLUCOSAMINE CHONDROITIN [Concomitant]
  4. VITAMIN E [Concomitant]
  5. GINSENG [Concomitant]
  6. MAGNESIUM [Concomitant]
  7. CIALIS [Concomitant]
  8. ANTI-ANXIETY PILL (NOS) [Concomitant]

REACTIONS (3)
  - CHEST DISCOMFORT [None]
  - NERVOUSNESS [None]
  - PANIC ATTACK [None]
